FAERS Safety Report 4415973-0 (Version None)
Quarter: 2004Q3

REPORT INFORMATION
  Report Type: 
  Country: None (occurrence: None)
  Receive Date: 20040730
  Receipt Date: 20040726
  Transmission Date: 20050211
  Serious: Yes (Death, Hospitalization)
  Sender: FDA-Public Use
  Company Number: STA-AE-04-MTX-330

PATIENT
  Age: 74 Year
  Sex: Male

DRUGS (12)
  1. METHOTREXATE [Suspect]
     Indication: PSORIATIC ARTHROPATHY
     Dosage: 5 MG 1 X PER 1 DAY ORAL
     Route: 048
     Dates: start: 20040520, end: 20040530
  2. ATENOLOL [Concomitant]
  3. ALLOPURINOL [Concomitant]
  4. NORVASC [Concomitant]
  5. APROVEL (IRBESARTAN) [Concomitant]
  6. LASIX [Concomitant]
  7. DEDRALEN (DOXAZOSIN MESILATE) [Concomitant]
  8. LOSARTAN (LOSARTAN) [Concomitant]
  9. RAMIPRIL [Concomitant]
  10. OMEPRAZEN (OMEPRAZOLE) [Concomitant]
  11. SUPREFACT (BUSERELIN ACETATE) [Concomitant]
  12. MESULID (NIMESULIDE) [Concomitant]

REACTIONS (8)
  - ACCIDENTAL OVERDOSE [None]
  - BONE MARROW DEPRESSION [None]
  - COMA HEPATIC [None]
  - GENERALISED OEDEMA [None]
  - HAEMORRHAGE [None]
  - MEDICATION ERROR [None]
  - MULTI-ORGAN FAILURE [None]
  - SEPSIS [None]
